FAERS Safety Report 5712761-X (Version None)
Quarter: 2008Q2

REPORT INFORMATION
  Report Type: 
  Country: None (occurrence: None)
  Receive Date: 20080421
  Receipt Date: 20080421
  Transmission Date: 20081010
  Serious: Yes (Hospitalization)
  Sender: FDA-Public Use
  Company Number: None

PATIENT
  Age: 37 Year
  Sex: Male
  Weight: 77.1115 kg

DRUGS (2)
  1. PROAIR HFA [Suspect]
  2. ALBUTEROL CFC [Suspect]

REACTIONS (1)
  - DRUG INEFFECTIVE [None]
